FAERS Safety Report 8016882-0 (Version None)
Quarter: 2012Q1

REPORT INFORMATION
  Report Type: 
  Country: None (occurrence: None)
  Receive Date: 20120102
  Receipt Date: 20111219
  Transmission Date: 20120608
  Serious: Yes (Other)
  Sender: FDA-Public Use
  Company Number: PHFR2011GB04972

PATIENT
  Sex: Female

DRUGS (3)
  1. CLOZARIL [Suspect]
     Indication: SCHIZOPHRENIA
     Dosage: 500 MG, DAILY
     Route: 048
     Dates: start: 19970228
  2. LETROZOLE [Concomitant]
     Dosage: 2.5 MG, DAILY
  3. HERCEPTIN [Concomitant]

REACTIONS (2)
  - BREAST CANCER [None]
  - VEIN DISORDER [None]
